FAERS Safety Report 11455033 (Version 2)
Quarter: 2016Q2

REPORT INFORMATION
  Report Type: Spontaneous
  Country: DK (occurrence: DK)
  Receive Date: 20150903
  Receipt Date: 20160614
  Transmission Date: 20160815
  Serious: Yes (Other)
  Sender: FDA-Public Use
  Company Number: PHHY2015DK045310

PATIENT
  Age: 72 Year
  Sex: Male
  Weight: 104 kg

DRUGS (1)
  1. ZOMETA [Suspect]
     Active Substance: ZOLEDRONIC ACID
     Indication: METASTASES TO BONE
     Dosage: 4 MG, UNK
     Route: 042
     Dates: start: 20130116, end: 20140123

REACTIONS (6)
  - Exposed bone in jaw [Unknown]
  - Sequestrectomy [Unknown]
  - Osteonecrosis of jaw [Recovered/Resolved]
  - Mouth swelling [Unknown]
  - Oral mucosal erythema [Unknown]
  - Pain [Unknown]

NARRATIVE: CASE EVENT DATE: 201406
